FAERS Safety Report 5167297-4 (Version None)
Quarter: 2006Q4

REPORT INFORMATION
  Report Type: 
  Country: None (occurrence: None)
  Receive Date: 20061130
  Receipt Date: 20061117
  Transmission Date: 20070319
  Serious: Yes (Hospitalization)
  Sender: FDA-Public Use
  Company Number: MEDI-0005144

PATIENT
  Sex: Male

DRUGS (1)
  1. ETHYOL [Suspect]
     Dosage: SUBCUTANEOUS
     Route: 058
     Dates: end: 20061109

REACTIONS (5)
  - ERYTHEMA [None]
  - NONSPECIFIC REACTION [None]
  - PYREXIA [None]
  - RASH [None]
  - SKIN EXFOLIATION [None]
